FAERS Safety Report 18752422 (Version 1)
Quarter: 2021Q1

REPORT INFORMATION
  Report Type: Spontaneous
  Country: US (occurrence: US)
  Receive Date: 20210118
  Receipt Date: 20210118
  Transmission Date: 20210419
  Serious: No
  Sender: FDA-Public Use
  Company Number: US-LUNDBECK-DKLU3025540

PATIENT
  Age: 88 Year
  Sex: Male

DRUGS (6)
  1. NORTHERA [Suspect]
     Active Substance: DROXIDOPA
     Indication: ORTHOSTATIC HYPOTENSION
     Route: 048
     Dates: start: 202007
  2. ASPIRIN. [Concomitant]
     Active Substance: ASPIRIN
     Indication: PRODUCT USED FOR UNKNOWN INDICATION
     Route: 065
  3. NEUPRO [Concomitant]
     Active Substance: ROTIGOTINE
     Indication: PRODUCT USED FOR UNKNOWN INDICATION
     Route: 065
  4. RITALIN [Interacting]
     Active Substance: METHYLPHENIDATE HYDROCHLORIDE
     Indication: PRODUCT USED FOR UNKNOWN INDICATION
     Route: 065
  5. NUPLAZID [Concomitant]
     Active Substance: PIMAVANSERIN TARTRATE
     Indication: PRODUCT USED FOR UNKNOWN INDICATION
     Route: 065
  6. MULTIVITAMIN [Concomitant]
     Active Substance: VITAMINS
     Indication: PRODUCT USED FOR UNKNOWN INDICATION
     Route: 065

REACTIONS (3)
  - Blood pressure fluctuation [Not Recovered/Not Resolved]
  - Drug interaction [Not Recovered/Not Resolved]
  - Hypertension [Not Recovered/Not Resolved]
